FAERS Safety Report 10264458 (Version 2)
Quarter: 2014Q3

REPORT INFORMATION
  Report Type: Spontaneous
  Country: US (occurrence: US)
  Receive Date: 20140627
  Receipt Date: 20140709
  Transmission Date: 20150326
  Serious: Yes (Other)
  Sender: FDA-Public Use
  Company Number: US-ROCHE-1419828

PATIENT
  Age: 67 Year
  Sex: Male

DRUGS (6)
  1. CAPECITABINE [Suspect]
     Active Substance: CAPECITABINE
     Indication: SKIN CANCER
     Route: 048
  2. ACITRETIN [Suspect]
     Active Substance: ACITRETIN
     Route: 065
  3. PREDNISONE. [Suspect]
     Active Substance: PREDNISONE
     Indication: PROPHYLAXIS AGAINST TRANSPLANT REJECTION
     Route: 065
  4. MYCOPHENOLATE MOFETIL. [Suspect]
     Active Substance: MYCOPHENOLATE MOFETIL
     Indication: PROPHYLAXIS AGAINST TRANSPLANT REJECTION
     Route: 065
  5. ACITRETIN [Suspect]
     Active Substance: ACITRETIN
     Indication: SKIN CANCER
     Route: 065
  6. TACROLIMUS. [Suspect]
     Active Substance: TACROLIMUS
     Indication: PROPHYLAXIS AGAINST TRANSPLANT REJECTION
     Route: 065

REACTIONS (6)
  - Atypical fibroxanthoma [Unknown]
  - Malignant fibrous histiocytoma [Recovered/Resolved]
  - Basal cell carcinoma [Unknown]
  - Herpes zoster [Unknown]
  - Squamous cell carcinoma [Recovered/Resolved]
  - Drug ineffective [Unknown]
